FAERS Safety Report 5918805-4 (Version None)
Quarter: 2008Q4

REPORT INFORMATION
  Report Type: 
  Country: None (occurrence: None)
  Receive Date: 20081015
  Receipt Date: 20081001
  Transmission Date: 20090506
  Serious: Yes (Hospitalization)
  Sender: FDA-Public Use
  Company Number: US-AMGEN-QUU307709

PATIENT
  Sex: Female
  Weight: 90.8 kg

DRUGS (11)
  1. ENBREL [Suspect]
     Indication: PSORIASIS
     Route: 058
     Dates: start: 20050819
  2. ENBREL [Suspect]
     Indication: PSORIATIC ARTHROPATHY
  3. LYRICA [Concomitant]
     Dates: start: 20080101
  4. AMBIEN [Concomitant]
     Dates: start: 20040101
  5. MOBIC [Concomitant]
  6. CYMBALTA [Concomitant]
     Dates: start: 20050401
  7. LASIX [Concomitant]
     Dates: start: 20080101
  8. ATENOLOL [Concomitant]
     Dates: start: 20050101
  9. ISOSORBIDE [Concomitant]
     Dates: start: 20040101
  10. DIOVAN HCT [Concomitant]
     Dates: start: 20040101
  11. NORVASC [Concomitant]
     Dates: start: 20060101

REACTIONS (4)
  - DIARRHOEA [None]
  - LUMBAR SPINAL STENOSIS [None]
  - NAUSEA [None]
  - PRURITUS GENERALISED [None]
